FAERS Safety Report 18797900 (Version 1)
Quarter: 2021Q1

REPORT INFORMATION
  Report Type: Spontaneous
  Country: AU (occurrence: AU)
  Receive Date: 20210128
  Receipt Date: 20210128
  Transmission Date: 20210419
  Serious: Yes (Hospitalization)
  Sender: FDA-Public Use
  Company Number: AU-VISTAPHARM, INC.-VER202101-000554

PATIENT
  Age: 10 Day
  Sex: Male
  Weight: 3.5 kg

DRUGS (1)
  1. HYDROCODONE AND ACETAMINOPHEN [Suspect]
     Active Substance: ACETAMINOPHEN\HYDROCODONE
     Indication: PRODUCT USED FOR UNKNOWN INDICATION
     Dosage: 112 MG/KG DAILY DURING 2 CONSECUTIVE DAYS
     Route: 048

REACTIONS (2)
  - Accidental overdose [Unknown]
  - Hyperbilirubinaemia neonatal [Recovered/Resolved]
